FAERS Safety Report 15537737 (Version 1)
Quarter: 2018Q4

REPORT INFORMATION
  Report Type: Spontaneous
  Country: IN (occurrence: IN)
  Receive Date: 20181022
  Receipt Date: 20181022
  Transmission Date: 20190205
  Serious: Yes (Death, Other)
  Sender: FDA-Public Use
  Company Number: IN-HQ SPECIALTY-IN-2018INT000198

PATIENT
  Age: 29 Year
  Sex: Male

DRUGS (10)
  1. CISPLATIN. [Suspect]
     Active Substance: CISPLATIN
     Dosage: 40 MG, (FORTH CYCLE) DAYS 1, 2 AND 3
     Route: 042
     Dates: start: 20150111
  2. CISPLATIN. [Suspect]
     Active Substance: CISPLATIN
     Dosage: 40 MG, (FIFTH CYCLE) DAYS 1, 2 AND 3
     Route: 042
     Dates: start: 20150226
  3. OXALIPLATIN. [Suspect]
     Active Substance: OXALIPLATIN
     Indication: GALLBLADDER ADENOCARCINOMA
     Dosage: (FIRST CYCLE)
     Route: 042
     Dates: start: 20140921
  4. GEMCITABINE [Suspect]
     Active Substance: GEMCITABINE\GEMCITABINE HYDROCHLORIDE
     Dosage: (SECOND CYCLE)
     Route: 042
     Dates: start: 20141010
  5. GEMCITABINE [Suspect]
     Active Substance: GEMCITABINE\GEMCITABINE HYDROCHLORIDE
     Dosage: 1200 MG, (FOURTH CYCLE) DAY 1
     Route: 042
     Dates: start: 20150111
  6. GEMCITABINE [Suspect]
     Active Substance: GEMCITABINE\GEMCITABINE HYDROCHLORIDE
     Dosage: 1200 MG, (FIFTH CYCLE) DAY 1
     Route: 042
     Dates: start: 20150226
  7. OXALIPLATIN. [Suspect]
     Active Substance: OXALIPLATIN
     Dosage: (SECOND CYCLE)
     Route: 042
     Dates: start: 20141010
  8. CISPLATIN. [Suspect]
     Active Substance: CISPLATIN
     Indication: GALLBLADDER ADENOCARCINOMA
     Dosage: 40 MG, (THIRD CYCLE) DAYS 1, 2 AND 3
     Route: 042
  9. GEMCITABINE [Suspect]
     Active Substance: GEMCITABINE\GEMCITABINE HYDROCHLORIDE
     Indication: GALLBLADDER ADENOCARCINOMA
     Dosage: (FIRST CYCLE)
     Route: 042
     Dates: start: 20140921
  10. GEMCITABINE [Suspect]
     Active Substance: GEMCITABINE\GEMCITABINE HYDROCHLORIDE
     Dosage: 1200 MG, (THIRD CYCLE), ON DAY 1
     Route: 042

REACTIONS (2)
  - Acute coronary syndrome [Recovered/Resolved]
  - Cardiogenic shock [Fatal]

NARRATIVE: CASE EVENT DATE: 20150111
